FAERS Safety Report 12821715 (Version 7)
Quarter: 2022Q3

REPORT INFORMATION
  Report Type: Report from Study
  Country: DE (occurrence: None)
  Receive Date: 20161007
  Receipt Date: 20220825
  Transmission Date: 20221026
  Serious: Yes (Hospitalization)
  Sender: FDA-Public Use
  Company Number: DE-ROCHE-1839144

PATIENT
  Age: 62 Year
  Sex: Male
  Weight: 87.9 kg

DRUGS (4)
  1. TRASTUZUMAB [Suspect]
     Active Substance: TRASTUZUMAB
     Indication: HER2 positive gastric cancer
     Dosage: MOST RECENT DOSE PRIOR TO EVENT 27/SEP/2016
     Route: 042
     Dates: start: 20160420
  2. PERTUZUMAB [Suspect]
     Active Substance: PERTUZUMAB
     Indication: HER2 positive gastric cancer
     Dosage: MOST RECENT DOSE PRIOR TO EVENT 27/SEP/2016
     Route: 042
     Dates: start: 20160420
  3. OXALIPLATIN [Suspect]
     Active Substance: OXALIPLATIN
     Indication: HER2 positive gastric cancer
     Dosage: MOST RECENT DOSE PRIOR TO EVENT 27/SEP/2016
     Route: 042
     Dates: start: 20160816
  4. FLUOROURACIL [Suspect]
     Active Substance: FLUOROURACIL
     Indication: HER2 positive gastric cancer
     Dosage: MOST RECENT DOSE PRIOR TO EVENT 27/SEP/2016
     Route: 042
     Dates: start: 20160420

REACTIONS (3)
  - Atrial fibrillation [Recovered/Resolved]
  - Atypical pneumonia [Recovered/Resolved]
  - Chronic myocarditis [Recovered/Resolved]

NARRATIVE: CASE EVENT DATE: 20160713
